FAERS Safety Report 5103141-9 (Version None)
Quarter: 2006Q3

REPORT INFORMATION
  Report Type: 
  Country: None (occurrence: None)
  Receive Date: 20060908
  Receipt Date: 20060830
  Transmission Date: 20061208
  Serious: Yes (Other)
  Sender: FDA-Public Use
  Company Number: 2006106008

PATIENT
  Age: 50 Year
  Sex: Female

DRUGS (5)
  1. LIPITOR [Suspect]
     Indication: DRUG USE FOR UNKNOWN INDICATION
     Dosage: 40 MG (40 MG, 1 IN 1 D), ORAL
     Route: 048
     Dates: end: 20060701
  2. METOPROLOL [Concomitant]
  3. HYZAAR [Concomitant]
  4. ASCAL (ACETYLSALICYLATE CALCIUM) [Concomitant]
  5. PARACETAMOL [Concomitant]

REACTIONS (1)
  - GAMMA-GLUTAMYLTRANSFERASE INCREASED [None]
